FAERS Safety Report 7730078-9 (Version None)
Quarter: 2011Q3

REPORT INFORMATION
  Report Type: 
  Country: None (occurrence: None)
  Receive Date: 20110906
  Receipt Date: 20110826
  Transmission Date: 20111222
  Serious: Yes (Hospitalization, Other)
  Sender: FDA-Public Use
  Company Number: PHHY2011SE76213

PATIENT
  Sex: Female

DRUGS (6)
  1. FERRO PLUS [Concomitant]
     Dosage: UNK UKN, UNK
  2. COMBIPATCH [Suspect]
     Dosage: 50 MICROGRAMS/24 H, ONE PATCH EVERY FOURTH DAY
     Route: 062
     Dates: start: 19990101, end: 20110815
  3. VITAMIN B-12 [Concomitant]
     Dosage: UNK UKN, UNK
  4. VITAMIN B6 [Concomitant]
     Dosage: UNK UKN, UNK
  5. MITT VAL SPORT [Concomitant]
     Dosage: UNK UKN, UNK
  6. ZINC [Concomitant]
     Dosage: UNK UKN, UNK

REACTIONS (4)
  - BREAST CANCER [None]
  - DIARRHOEA [None]
  - BODY HEIGHT DECREASED [None]
  - CONSTIPATION [None]
